FAERS Safety Report 9852381 (Version 2)
Quarter: 2014Q1

REPORT INFORMATION
  Report Type: Spontaneous
  Country: US (occurrence: US)
  Receive Date: 20140129
  Receipt Date: 20140129
  Transmission Date: 20141002
  Serious: No
  Sender: FDA-Public Use
  Company Number: US-BRACCO-009364

PATIENT
  Sex: Female

DRUGS (1)
  1. MULTIHANCE [Suspect]
     Indication: DIAGNOSTIC PROCEDURE
     Dosage: 10 TO 20 ML OF MULTIHANCE ADMINISTERED
     Route: 042
     Dates: start: 20130306, end: 20130306

REACTIONS (1)
  - Drug ineffective [Unknown]
